FAERS Safety Report 15341987 (Version 1)
Quarter: 2018Q3

REPORT INFORMATION
  Report Type: Spontaneous
  Country: US (occurrence: US)
  Receive Date: 20180828
  Receipt Date: 20180828
  Transmission Date: 20181010
  Serious: Yes (Death)
  Sender: FDA-Public Use
  Company Number: None

PATIENT
  Sex: Female

DRUGS (2)
  1. TEMOZOLOMIDE, 100 MG [Suspect]
     Active Substance: TEMOZOLOMIDE
     Indication: BREAST CANCER FEMALE
     Route: 048
     Dates: start: 20180502
  2. TEMOZOLOMIDE, 250 MG [Suspect]
     Active Substance: TEMOZOLOMIDE
     Indication: BREAST CANCER FEMALE
     Route: 048
     Dates: start: 20180502

REACTIONS (1)
  - Death [None]
